FAERS Safety Report 4999799-5 (Version None)
Quarter: 2006Q2

REPORT INFORMATION
  Report Type: 
  Country: None (occurrence: None)
  Receive Date: 20060509
  Receipt Date: 20060509
  Transmission Date: 20061013
  Serious: Yes (Hospitalization)
  Sender: FDA-Public Use
  Company Number: None

PATIENT
  Age: 47 Year
  Sex: Male
  Weight: 82.1011 kg

DRUGS (1)
  1. NAPHAZOLINE HCL [Suspect]
     Indication: CONJUNCTIVITIS ALLERGIC
     Dosage: 1DROPS  Q6H   TOP
     Route: 061
     Dates: start: 20050908, end: 20051028

REACTIONS (3)
  - EYE IRRITATION [None]
  - EYELID MARGIN CRUSTING [None]
  - OCULAR HYPERAEMIA [None]
